FAERS Safety Report 9757710 (Version 1)
Quarter: 2013Q4

REPORT INFORMATION
  Report Type: Spontaneous
  Country: FR (occurrence: FR)
  Receive Date: 20131216
  Receipt Date: 20131216
  Transmission Date: 20140711
  Serious: Yes (Hospitalization)
  Sender: FDA-Public Use
  Company Number: FR-BRISTOL-MYERS SQUIBB COMPANY-19892108

PATIENT
  Age: 86 Year
  Sex: Male

DRUGS (8)
  1. YERVOY [Suspect]
     Indication: METASTATIC MALIGNANT MELANOMA
     Dosage: 1 DF=YERVOY 5 MG/ML ?INJ?SOLN FOR INFUSION ?0.1429 MG/KG (I.E., 3 MG/KG 1/3 WEEKS)
     Dates: start: 20130617, end: 20130721
  2. CORTANCYL [Concomitant]
  3. ALDACTONE [Concomitant]
  4. ATENOLOL [Concomitant]
  5. IXPRIM [Concomitant]
  6. BEROCCA [Concomitant]
  7. MAGNE-B6 [Concomitant]
  8. CERVOXAN [Concomitant]

REACTIONS (2)
  - Diarrhoea [Recovered/Resolved]
  - Hyponatraemia [Recovered/Resolved]
